FAERS Safety Report 5124692-7 (Version None)
Quarter: 2006Q4

REPORT INFORMATION
  Report Type: 
  Country: None (occurrence: None)
  Receive Date: 20061011
  Receipt Date: 20061004
  Transmission Date: 20070319
  Serious: Yes (Hospitalization)
  Sender: FDA-Public Use
  Company Number: US-AMGEN-US194296

PATIENT
  Age: 85 Year
  Sex: Female
  Weight: 67.5 kg

DRUGS (8)
  1. EPOGEN [Suspect]
     Indication: RENAL FAILURE CHRONIC
     Route: 042
     Dates: start: 20050201
  2. HECTORAL [Concomitant]
     Dates: start: 20060206
  3. VENOFER [Concomitant]
     Dates: start: 20050127
  4. ZEMPLAR [Concomitant]
     Dates: start: 20060206
  5. ATENOLOL [Concomitant]
     Dates: start: 20040629
  6. BENADRYL [Concomitant]
     Dates: start: 20051109
  7. LASIX [Concomitant]
     Dates: start: 20040505
  8. BACTRIM DS [Concomitant]
     Dates: start: 20040505

REACTIONS (2)
  - ANAEMIA [None]
  - CELLULITIS [None]
